FAERS Safety Report 7500217-3 (Version None)
Quarter: 2011Q2

REPORT INFORMATION
  Report Type: 
  Country: None (occurrence: None)
  Receive Date: 20110524
  Receipt Date: 20110404
  Transmission Date: 20111010
  Serious: No
  Sender: FDA-Public Use
  Company Number: US-NOVEN-11US002192

PATIENT
  Sex: Female
  Weight: 21.315 kg

DRUGS (3)
  1. DAYTRANA [Suspect]
     Dosage: 30 MG, UNKNOWN
     Route: 062
     Dates: start: 20110301
  2. CLONIDINE [Concomitant]
     Indication: INSOMNIA
     Dosage: 0.1 MG, UNK
     Route: 048
     Dates: start: 20090801
  3. DAYTRANA [Suspect]
     Indication: ATTENTION DEFICIT/HYPERACTIVITY DISORDER
     Dosage: 20 MG, UNK
     Route: 062
     Dates: start: 20100401, end: 20110301

REACTIONS (3)
  - PRODUCT QUALITY ISSUE [None]
  - DRUG INEFFECTIVE [None]
  - DRUG ADMINISTRATION ERROR [None]
